FAERS Safety Report 9619134 (Version 3)
Quarter: 2013Q4

REPORT INFORMATION
  Report Type: Spontaneous
  Country: AU (occurrence: AU)
  Receive Date: 20131014
  Receipt Date: 20131204
  Transmission Date: 20140711
  Serious: Yes (Disabling, Other)
  Sender: FDA-Public Use
  Company Number: AU-PFIZER INC-2013290855

PATIENT
  Age: 46 Year
  Sex: Female

DRUGS (6)
  1. REVATIO [Suspect]
     Indication: PULMONARY HYPERTENSION
     Dosage: 20 MG, 3X/DAY
     Route: 048
  2. REVATIO [Suspect]
     Indication: SCLERODERMA
  3. REVATIO [Suspect]
     Indication: INTERSTITIAL LUNG DISEASE
  4. SOMAC [Concomitant]
     Indication: REFLUX GASTRITIS
     Dosage: 40 MG, 1X/DAY
  5. LASIX [Concomitant]
     Indication: PULMONARY HYPERTENSION
     Dosage: 80MG, 40MG MID-DAY
     Route: 048
  6. SPIRACTIN [Concomitant]
     Indication: PULMONARY HYPERTENSION
     Dosage: 25 MG, 1X/DAY
     Route: 048

REACTIONS (3)
  - Cardiac failure [Unknown]
  - Oedema [Unknown]
  - Pulmonary hypertension [Unknown]
